FAERS Safety Report 5146761-8 (Version None)
Quarter: 2006Q4

REPORT INFORMATION
  Report Type: 
  Country: None (occurrence: None)
  Receive Date: 20061102
  Receipt Date: 20061024
  Transmission Date: 20070319
  Serious: Yes (Hospitalization)
  Sender: FDA-Public Use
  Company Number: 2006BI014380

PATIENT
  Age: 54 Year
  Sex: Female

DRUGS (5)
  1. AVONEX [Suspect]
     Indication: MULTIPLE SCLEROSIS
     Dosage: 30 UG; QW; IM
     Route: 030
     Dates: start: 20010801
  2. AVONEX [Suspect]
     Indication: MULTIPLE SCLEROSIS
     Dosage: 30 UG; QW; IM
     Route: 030
     Dates: start: 20050101, end: 20060901
  3. PAXIL [Concomitant]
  4. METAMUCIL [Concomitant]
  5. ALPRAZOLAM [Concomitant]

REACTIONS (3)
  - ABDOMINAL NEOPLASM [None]
  - HYSTERECTOMY [None]
  - NEOPLASM MALIGNANT [None]
